FAERS Safety Report 8934696 (Version 1)
Quarter: 2012Q4

REPORT INFORMATION
  Report Type: 
  Country: US (occurrence: US)
  Receive Date: 20121129
  Receipt Date: 20121129
  Transmission Date: 20130627
  Serious: Yes (Other)
  Sender: FDA-Public Use
  Company Number: CHPA2012US019374

PATIENT
  Sex: Female

DRUGS (1)
  1. NODOZ [Suspect]
     Dosage: Unk, Unk
     Route: 048

REACTIONS (8)
  - Hallucination [Recovered/Resolved]
  - Renal disorder [Recovered/Resolved]
  - Feeling abnormal [Recovered/Resolved]
  - Feeling jittery [Recovered/Resolved]
  - Nervousness [Recovered/Resolved]
  - Anxiety [Recovered/Resolved]
  - Blood mercury abnormal [Recovered/Resolved]
  - Therapeutic response unexpected [Unknown]
